FAERS Safety Report 6753627-6 (Version None)
Quarter: 2010Q2

REPORT INFORMATION
  Report Type: 
  Country: None (occurrence: None)
  Receive Date: 20100603
  Receipt Date: 20100521
  Transmission Date: 20101027
  Serious: Yes (Hospitalization)
  Sender: FDA-Public Use
  Company Number: FR-SANOFI-AVENTIS-2010SA029201

PATIENT
  Age: 86 Year
  Sex: Female

DRUGS (14)
  1. DI-ANTALVIC [Suspect]
     Indication: PAIN
     Route: 048
     Dates: end: 20091203
  2. LASIX [Suspect]
     Route: 065
     Dates: end: 20091204
  3. LEXOMIL [Suspect]
     Route: 048
     Dates: end: 20091203
  4. LEXOMIL [Suspect]
     Route: 048
     Dates: start: 20091204
  5. COUMADIN [Concomitant]
     Indication: CARDIOVASCULAR EVENT PROPHYLAXIS
     Route: 048
     Dates: end: 20091203
  6. COUMADIN [Concomitant]
     Route: 048
     Dates: start: 20091204
  7. LEVOTHYROXINE SODIUM [Concomitant]
     Route: 048
  8. OMEPRAZOLE [Concomitant]
     Indication: DRUG USE FOR UNKNOWN INDICATION
     Route: 048
  9. HEMIGOXINE NATIVELLE [Concomitant]
     Indication: ATRIAL FIBRILLATION
     Route: 048
  10. COLCHIMAX [Concomitant]
     Indication: DRUG USE FOR UNKNOWN INDICATION
     Route: 048
  11. IXEL [Concomitant]
     Route: 048
  12. COVERSYL /FRA/ [Concomitant]
     Route: 048
  13. EFFERALGAN [Concomitant]
     Indication: DRUG USE FOR UNKNOWN INDICATION
     Route: 048
  14. FUNGIZONE [Concomitant]
     Indication: DRUG USE FOR UNKNOWN INDICATION
     Route: 002

REACTIONS (6)
  - FALL [None]
  - HEAD INJURY [None]
  - HYPOTENSION [None]
  - LOSS OF CONSCIOUSNESS [None]
  - RIB FRACTURE [None]
  - SOMNOLENCE [None]
